FAERS Safety Report 12479074 (Version 1)
Quarter: 2016Q2

REPORT INFORMATION
  Report Type: Spontaneous
  Country: US (occurrence: None)
  Receive Date: 20160617
  Receipt Date: 20160617
  Transmission Date: 20160815
  Serious: No
  Sender: FDA-Public Use
  Company Number: None

PATIENT
  Age: 3 Year
  Sex: Female
  Weight: 80.74 kg

DRUGS (18)
  1. ARIMIDEX [Suspect]
     Active Substance: ANASTROZOLE
     Indication: NEOPLASM MALIGNANT
     Route: 048
     Dates: start: 201211
  2. OMEPRAZOLE. [Concomitant]
     Active Substance: OMEPRAZOLE
  3. MULTIVITAMINS [Concomitant]
     Active Substance: VITAMINS
  4. AMITRIPTYLINE [Concomitant]
     Active Substance: AMITRIPTYLINE
  5. ASPIRIN. [Concomitant]
     Active Substance: ASPIRIN
  6. FISH OIL [Concomitant]
     Active Substance: FISH OIL
  7. PAROXETINE HCL [Concomitant]
     Active Substance: PAROXETINE HYDROCHLORIDE
  8. ARIMIDEX [Suspect]
     Active Substance: ANASTROZOLE
     Indication: BREAST CONSERVING SURGERY
     Route: 048
     Dates: start: 201211
  9. DREAM STATION HEATED HUMIDIFIER [Concomitant]
  10. ATORVASTATIN CALCIUM. [Concomitant]
     Active Substance: ATORVASTATIN CALCIUM
  11. CALLCIUM [Concomitant]
  12. FIBER [Concomitant]
     Active Substance: PSYLLIUM HUSK
  13. PHILLIPS RESPERONICS [Concomitant]
  14. LEVOTHYROXINE. [Concomitant]
     Active Substance: LEVOTHYROXINE
  15. FLAXSEED [Concomitant]
     Active Substance: FLAX SEED
  16. AMLODIPINE BESYLATE. [Concomitant]
     Active Substance: AMLODIPINE BESYLATE
  17. ANASTROZOLE. [Concomitant]
     Active Substance: ANASTROZOLE
  18. VITAMIN D [Concomitant]
     Active Substance: CHOLECALCIFEROL

REACTIONS (11)
  - Depression [None]
  - Faeces hard [None]
  - Dysphonia [None]
  - Tremor [None]
  - Abdominal pain upper [None]
  - Fatigue [None]
  - Skin disorder [None]
  - Arthralgia [None]
  - Gastritis [None]
  - Nervousness [None]
  - Weight increased [None]

NARRATIVE: CASE EVENT DATE: 2016
